FAERS Safety Report 21072960 (Version 2)
Quarter: 2022Q4

REPORT INFORMATION
  Report Type: Spontaneous
  Country: US (occurrence: US)
  Receive Date: 20220712
  Receipt Date: 20221005
  Transmission Date: 20230112
  Serious: No
  Sender: FDA-Public Use
  Company Number: US-SA-SAC20220705001546

PATIENT
  Age: 37 Year
  Sex: Female

DRUGS (2)
  1. DUPIXENT [Suspect]
     Active Substance: DUPILUMAB
     Indication: Asthma
     Dosage: 400 MG, 1X
     Route: 058
     Dates: start: 20220623, end: 20220623
  2. DUPIXENT [Suspect]
     Active Substance: DUPILUMAB
     Dosage: 200 MG, QOW
     Route: 058
     Dates: start: 20220626

REACTIONS (9)
  - Abdominal distension [Unknown]
  - Contusion [Unknown]
  - Fluid retention [Unknown]
  - Peripheral swelling [Unknown]
  - Nasal mucosal discolouration [Unknown]
  - Rash [Unknown]
  - Eye discharge [Unknown]
  - Burning sensation [Unknown]
  - Therapeutic response shortened [Unknown]
